FAERS Safety Report 6715944-5 (Version None)
Quarter: 2010Q2

REPORT INFORMATION
  Report Type: 
  Country: None (occurrence: None)
  Receive Date: 20100507
  Receipt Date: 20100428
  Transmission Date: 20101027
  Serious: Yes (Disabling)
  Sender: FDA-Public Use
  Company Number: CA-AMGEN-QUU409044

PATIENT
  Sex: Female
  Weight: 108 kg

DRUGS (5)
  1. ENBREL [Suspect]
     Indication: DRUG USE FOR UNKNOWN INDICATION
     Route: 051
  2. CELEBREX [Concomitant]
     Route: 048
  3. LEVOTHYROXINE SODIUM [Concomitant]
     Route: 048
  4. METHOTREXATE [Concomitant]
     Route: 048
  5. PLAQUENIL [Concomitant]
     Route: 048

REACTIONS (5)
  - HEADACHE [None]
  - MIGRAINE [None]
  - NAUSEA [None]
  - PHOTOPHOBIA [None]
  - VOMITING [None]
